FAERS Safety Report 15196009 (Version 1)
Quarter: 2018Q3

REPORT INFORMATION
  Report Type: Spontaneous
  Country: US (occurrence: US)
  Receive Date: 20180626
  Receipt Date: 20180626
  Transmission Date: 20181010
  Serious: No
  Sender: FDA-Public Use
  Company Number: None

PATIENT
  Age: 34 Year
  Sex: Female
  Weight: 64.41 kg

DRUGS (3)
  1. COLACE [Concomitant]
     Active Substance: DOCUSATE SODIUM
  2. NEXPLANON [Suspect]
     Active Substance: ETONOGESTREL
  3. IRON [Concomitant]
     Active Substance: IRON

REACTIONS (1)
  - Genital hypoaesthesia [None]

NARRATIVE: CASE EVENT DATE: 20180619
